FAERS Safety Report 14099505 (Version 2)
Quarter: 2018Q1

REPORT INFORMATION
  Report Type: Spontaneous
  Country: US (occurrence: US)
  Receive Date: 20171017
  Receipt Date: 20180307
  Transmission Date: 20180508
  Serious: Yes (Other)
  Sender: FDA-Public Use
  Company Number: US-ALLERGAN-1673096US

PATIENT
  Age: 29 Year
  Sex: Female

DRUGS (1)
  1. PYLERA [Suspect]
     Active Substance: BISMUTH SUBCITRATE POTASSIUM\METRONIDAZOLE\TETRACYCLINE HYDROCHLORIDE
     Indication: HELICOBACTER INFECTION
     Dosage: 12 DF, QD
     Route: 048
     Dates: start: 20161004, end: 20161013

REACTIONS (15)
  - Hangover [Not Recovered/Not Resolved]
  - Pain in extremity [Unknown]
  - Feeling drunk [Not Recovered/Not Resolved]
  - Head discomfort [Unknown]
  - Dizziness [Not Recovered/Not Resolved]
  - Visual agnosia [Not Recovered/Not Resolved]
  - Mental impairment [Not Recovered/Not Resolved]
  - Wrong technique in product usage process [Unknown]
  - Feeling abnormal [Not Recovered/Not Resolved]
  - Panic attack [Not Recovered/Not Resolved]
  - Pain in jaw [Unknown]
  - Tension headache [Unknown]
  - Inappropriate schedule of drug administration [Unknown]
  - Emotional disorder [Not Recovered/Not Resolved]
  - Balance disorder [Not Recovered/Not Resolved]

NARRATIVE: CASE EVENT DATE: 201610
